FAERS Safety Report 23374703 (Version 1)
Quarter: 2024Q1

REPORT INFORMATION
  Report Type: Report from Study
  Country: US (occurrence: US)
  Receive Date: 20240105
  Receipt Date: 20240105
  Transmission Date: 20240410
  Serious: Yes (Hospitalization)
  Sender: FDA-Public Use
  Company Number: US-SANDOZ-SDZ2023US009895

PATIENT
  Sex: Female
  Weight: 40.363 kg

DRUGS (2)
  1. TREPROSTINIL [Suspect]
     Active Substance: TREPROSTINIL
     Indication: Pulmonary arterial hypertension
     Dosage: UNK (244 NG/KG/MIN)
     Route: 042
     Dates: start: 20230517
  2. TREPROSTINIL [Suspect]
     Active Substance: TREPROSTINIL
     Dosage: UNK, CONT (256 NG/KG/MIN)
     Route: 042
     Dates: start: 20230517

REACTIONS (3)
  - Hospitalisation [Unknown]
  - Respiratory tract congestion [Unknown]
  - Productive cough [Unknown]
